FAERS Safety Report 6314863-6 (Version None)
Quarter: 2009Q3

REPORT INFORMATION
  Report Type: 
  Country: None (occurrence: None)
  Receive Date: 20090817
  Receipt Date: 20090817
  Transmission Date: 20100115
  Serious: No
  Sender: FDA-Public Use
  Company Number: None

PATIENT
  Age: 30 Year
  Sex: Female
  Weight: 48.9885 kg

DRUGS (1)
  1. CYMBALTA [Suspect]
     Indication: GENERALISED ANXIETY DISORDER
     Dosage: ONE DAILY PO
     Route: 048
     Dates: start: 20090807, end: 20090814

REACTIONS (1)
  - MYDRIASIS [None]
